FAERS Safety Report 21622033 (Version 7)
Quarter: 2023Q2

REPORT INFORMATION
  Report Type: Report from Study
  Country: PE (occurrence: PE)
  Receive Date: 20221121
  Receipt Date: 20230606
  Transmission Date: 20230722
  Serious: Yes (Other)
  Sender: FDA-Public Use
  Company Number: PE-002147023-NVSC2022PE216492

PATIENT
  Age: 72 Year
  Sex: Female

DRUGS (4)
  1. KISQALI [Suspect]
     Active Substance: RIBOCICLIB
     Indication: Breast cancer
     Dosage: 600 MG, QD
     Route: 048
     Dates: start: 20220316
  2. KISQALI [Suspect]
     Active Substance: RIBOCICLIB
     Dosage: 400 MG, QD
     Route: 048
     Dates: start: 20220316
  3. KISQALI [Suspect]
     Active Substance: RIBOCICLIB
     Dosage: 3 DOSAGE FORM, QD
     Route: 048
     Dates: start: 20220316
  4. KISQALI [Suspect]
     Active Substance: RIBOCICLIB
     Dosage: 2 DOSAGE FORM, QD (2 (400MG))
     Route: 048

REACTIONS (35)
  - Arrhythmia [Recovering/Resolving]
  - Metastases to pelvis [Recovering/Resolving]
  - Metastases to lymph nodes [Unknown]
  - Hepatitis [Unknown]
  - Metastases to bone [Unknown]
  - Eating disorder [Unknown]
  - Flatulence [Recovering/Resolving]
  - Retinal disorder [Unknown]
  - Rash [Unknown]
  - Dizziness [Recovered/Resolved]
  - Abnormal faeces [Unknown]
  - Frequent bowel movements [Unknown]
  - Decreased immune responsiveness [Unknown]
  - Chapped lips [Unknown]
  - Eye pruritus [Unknown]
  - Fear [Unknown]
  - Breast mass [Unknown]
  - Choking sensation [Unknown]
  - Heart sounds abnormal [Unknown]
  - Confusional state [Unknown]
  - Paranoia [Unknown]
  - Anxiety [Unknown]
  - COVID-19 [Unknown]
  - Malaise [Unknown]
  - Fibromyalgia [Recovered/Resolved]
  - Aphonia [Unknown]
  - Nervousness [Unknown]
  - Nausea [Unknown]
  - White blood cell count decreased [Unknown]
  - Pyrexia [Unknown]
  - Asthenia [Unknown]
  - Dry eye [Unknown]
  - Constipation [Unknown]
  - Vertigo [Unknown]
  - Drug ineffective [Unknown]

NARRATIVE: CASE EVENT DATE: 20220901
